FAERS Safety Report 9378500 (Version 3)
Quarter: 2013Q4

REPORT INFORMATION
  Report Type: Report from Study
  Country: MX (occurrence: MX)
  Receive Date: 20130702
  Receipt Date: 20131125
  Transmission Date: 20140711
  Serious: Yes (Hospitalization)
  Sender: FDA-Public Use
  Company Number: MX-ROCHE-1243638

PATIENT
  Age: 47 Year
  Sex: Female
  Weight: 61 kg

DRUGS (4)
  1. HERCEPTIN [Suspect]
     Indication: BREAST CANCER
     Route: 042
     Dates: start: 20120222, end: 201301
  2. HERCEPTIN [Suspect]
     Route: 042
     Dates: start: 20130418, end: 201310
  3. ANASTROZOL [Concomitant]
     Indication: BREAST CANCER
     Route: 048
     Dates: start: 20120222, end: 201301
  4. VINORELBINE [Concomitant]
     Indication: BREAST CANCER
     Dosage: ONE DAY AFTER TRASTUZUMAB INFUSION
     Route: 048
     Dates: start: 20130425

REACTIONS (9)
  - Dizziness [Recovered/Resolved]
  - Headache [Recovered/Resolved]
  - Ascites [Recovered/Resolved]
  - Abdominal pain [Not Recovered/Not Resolved]
  - Gastritis [Unknown]
  - Disease progression [Not Recovered/Not Resolved]
  - Vomiting [Recovered/Resolved]
  - Gait disturbance [Recovered/Resolved]
  - Metastases to central nervous system [Not Recovered/Not Resolved]
